FAERS Safety Report 4861833-0 (Version None)
Quarter: 2005Q4

REPORT INFORMATION
  Report Type: 
  Country: None (occurrence: None)
  Receive Date: 20051130
  Receipt Date: 20050114
  Transmission Date: 20060501
  Serious: Yes (Other)
  Sender: FDA-Public Use
  Company Number: 2005016696

PATIENT
  Sex: 0

DRUGS (3)
  1. ZYVOX [Suspect]
     Indication: STAPHYLOCOCCAL INFECTION
     Dosage: 1200 MG (600 MG, EVERY 12 HOURS), ORAL
     Route: 048
     Dates: start: 20050112
  2. WARFARIN SODIUM [Concomitant]
  3. AZITHROMYCIN [Concomitant]

REACTIONS (2)
  - HAEMOGLOBIN ABNORMAL [None]
  - RED BLOOD CELL COUNT DECREASED [None]
